FAERS Safety Report 5427018-4 (Version None)
Quarter: 2007Q3

REPORT INFORMATION
  Report Type: 
  Country: None (occurrence: None)
  Receive Date: 20070731
  Receipt Date: 20070501
  Transmission Date: 20080115
  Serious: No
  Sender: FDA-Public Use
  Company Number: US200705000560

PATIENT
  Age: 51 Year
  Sex: Female
  Weight: 81.9 kg

DRUGS (4)
  1. BYETTA [Suspect]
     Indication: TYPE 2 DIABETES MELLITUS
     Dosage: 5 UG, 10 UG, EACH MORNING, SUBCUTANEOUS 5 UG, EACH EVENING, SUBCUTANEOUS 5 UG, 2/D, SUBCUTANEOUS
     Route: 058
     Dates: start: 20070401, end: 20070401
  2. BYETTA [Suspect]
     Indication: TYPE 2 DIABETES MELLITUS
     Dosage: 5 UG, 10 UG, EACH MORNING, SUBCUTANEOUS 5 UG, EACH EVENING, SUBCUTANEOUS 5 UG, 2/D, SUBCUTANEOUS
     Route: 058
     Dates: start: 20070401, end: 20070401
  3. BYETTA [Suspect]
     Indication: TYPE 2 DIABETES MELLITUS
     Dosage: 5 UG, 10 UG, EACH MORNING, SUBCUTANEOUS 5 UG, EACH EVENING, SUBCUTANEOUS 5 UG, 2/D, SUBCUTANEOUS
     Route: 058
     Dates: start: 20070101
  4. BYETTA [Suspect]
     Indication: TYPE 2 DIABETES MELLITUS
     Dosage: 5 UG, 10 UG, EACH MORNING, SUBCUTANEOUS 5 UG, EACH EVENING, SUBCUTANEOUS 5 UG, 2/D, SUBCUTANEOUS
     Route: 058
     Dates: start: 20070401

REACTIONS (8)
  - CONFUSIONAL STATE [None]
  - DECREASED APPETITE [None]
  - HYPERHIDROSIS [None]
  - HYPOGLYCAEMIA [None]
  - INCREASED APPETITE [None]
  - NAUSEA [None]
  - NERVOUSNESS [None]
  - WEIGHT DECREASED [None]
